FAERS Safety Report 6433340-5 (Version None)
Quarter: 2009Q4

REPORT INFORMATION
  Report Type: 
  Country: None (occurrence: None)
  Receive Date: 20091109
  Receipt Date: 20070809
  Transmission Date: 20100525
  Serious: Yes (Death, Life-Threatening)
  Sender: FDA-Public Use
  Company Number: FR-GENENTECH-238624

PATIENT
  Sex: Male

DRUGS (4)
  1. AVASTIN [Suspect]
     Indication: COLORECTAL CANCER METASTATIC
     Dosage: 310 MG/100 MG, UNK
     Route: 042
     Dates: start: 20070105, end: 20070119
  2. FLUOROURACIL [Suspect]
     Indication: COLORECTAL CANCER METASTATIC
     Dosage: 710 MG, UNK
     Route: 042
     Dates: start: 20070105, end: 20070119
  3. FLUOROURACIL [Suspect]
     Dosage: 2130 MG, UNK
     Route: 042
     Dates: start: 20070105, end: 20070119
  4. IRINOTECAN HCL [Suspect]
     Indication: COLORECTAL CANCER METASTATIC
     Dosage: 320 MG, UNK
     Route: 042
     Dates: start: 20070105, end: 20070119

REACTIONS (2)
  - HAEMATEMESIS [None]
  - SHOCK [None]
